FAERS Safety Report 8345963-7 (Version None)
Quarter: 2012Q2

REPORT INFORMATION
  Report Type: 
  Country: None (occurrence: None)
  Receive Date: 20120507
  Receipt Date: 20120501
  Transmission Date: 20120825
  Serious: Yes (Hospitalization)
  Sender: FDA-Public Use
  Company Number: 2011SP059099

PATIENT
  Age: 56 Year
  Sex: Male
  Weight: 76 kg

DRUGS (8)
  1. TEMOZOLOMIDE [Suspect]
     Indication: MALIGNANT GLIOMA
     Dosage: 200 MG/M2; QD; PO   100 MG/M2; QD;
     Route: 048
     Dates: start: 20110809, end: 20111022
  2. GLIMEPIRIDE [Concomitant]
  3. NOVORAPID [Concomitant]
  4. METFORMIN HCL [Concomitant]
  5. TGF-BETA-RI KINASE INHIBITOR (OTHER ANTINEOPLASTIC AGENTS) [Suspect]
     Indication: MALIGNANT GLIOMA
     Dosage: 160 MG; BID; PO
     Route: 048
     Dates: start: 20110809, end: 20111112
  6. TGF-BETA-RI KINASE INHIBITOR (OTHER ANTINEOPLASTIC AGENTS) [Suspect]
     Indication: MALIGNANT GLIOMA
     Dosage: 160 MG; BID; PO
     Route: 048
     Dates: start: 20111129
  7. LEVETIRACETAM [Concomitant]
  8. OMEPRAZOLE [Concomitant]

REACTIONS (2)
  - THROMBOCYTOPENIA [None]
  - TUMOUR HAEMORRHAGE [None]
